FAERS Safety Report 5019118-8 (Version None)
Quarter: 2006Q2

REPORT INFORMATION
  Report Type: 
  Country: None (occurrence: None)
  Receive Date: 20060606
  Receipt Date: 20060228
  Transmission Date: 20061013
  Serious: Yes (Other)
  Sender: FDA-Public Use
  Company Number: AU-GLAXOSMITHKLINE-B0413856A

PATIENT
  Age: 48 Year
  Sex: Female

DRUGS (3)
  1. NICABATE CQ 4MG LOZENGE [Suspect]
     Dosage: 4MG SEE DOSAGE TEXT
     Route: 002
     Dates: start: 20030101
  2. EFFEXOR XR [Concomitant]
     Indication: DEPRESSION
  3. FLUNITRAZEPAM [Concomitant]

REACTIONS (5)
  - FATIGUE [None]
  - HYPERHIDROSIS [None]
  - INTENTIONAL DRUG MISUSE [None]
  - PAIN [None]
  - THYROID GLAND CANCER [None]
